FAERS Safety Report 8308806-3 (Version None)
Quarter: 2012Q1

REPORT INFORMATION
  Report Type: 
  Country: None (occurrence: None)
  Receive Date: 20120327
  Receipt Date: 20110321
  Transmission Date: 20120608
  Serious: Yes (Disabling, Other)
  Sender: FDA-Public Use
  Company Number: PHHY2011US16858

PATIENT
  Age: 68 Year
  Sex: Male
  Weight: 129 kg

DRUGS (16)
  1. ACTOS (PIOGLITAZONE, PIOGLITAZONE HYDROCHLORIDE) [Concomitant]
  2. ANDROGEL [Concomitant]
  3. ALLOPURINOL [Concomitant]
  4. ARTHROTEC [Concomitant]
  5. LISINOPRIL [Concomitant]
  6. LOVASTATIN [Concomitant]
  7. GLEEVEC [Suspect]
     Indication: ACUTE MYELOID LEUKAEMIA
     Dosage: 400 MG, QD, ORAL
     Route: 048
     Dates: start: 20101011
  8. PERCOCET [Concomitant]
  9. FOLBEE PLUS [Concomitant]
  10. RUOSEMIDE (FUROSEMIDE) [Concomitant]
  11. ACETAMINOPHEN AND HYDROCODONE BITARTRATE [Concomitant]
  12. OMEPRAZOLE [Concomitant]
  13. PROMETHAZINE HYDROCHLORIDE [Concomitant]
  14. ASPIRIN [Concomitant]
  15. GABAPENTIN [Concomitant]
  16. POTASSIUM CHLORIDE [Concomitant]

REACTIONS (4)
  - VOMITING [None]
  - DIZZINESS [None]
  - NAUSEA [None]
  - DIARRHOEA [None]
